FAERS Safety Report 5924176-X (Version None)
Quarter: 2008Q3

REPORT INFORMATION
  Report Type: 
  Country: None (occurrence: None)
  Receive Date: 20080909
  Receipt Date: 20080206
  Transmission Date: 20090109
  Serious: Yes (Hospitalization)
  Sender: FDA-Public Use
  Company Number: 163-20785-08020444

PATIENT
  Age: 64 Year
  Sex: Female

DRUGS (3)
  1. THALOMID [Suspect]
     Indication: MULTIPLE MYELOMA
     Dosage: 200 MG, 1 IN 1 D, ORAL
     Route: 048
     Dates: start: 20070413, end: 20080123
  2. PROCARIA (NIFEDIPINE) [Concomitant]
  3. METOPROLOL TARTRATE [Concomitant]

REACTIONS (3)
  - BRONCHITIS [None]
  - DRUG INEFFECTIVE [None]
  - PNEUMONIA [None]
